FAERS Safety Report 9723711 (Version 2)
Quarter: 2014Q2

REPORT INFORMATION
  Report Type: Spontaneous
  Country: US (occurrence: US)
  Receive Date: 20131202
  Receipt Date: 20140430
  Transmission Date: 20141212
  Serious: Yes (Other)
  Sender: FDA-Public Use
  Company Number: US-TEVA-447403USA

PATIENT
  Age: 38 Year
  Sex: Female
  Weight: 82.17 kg

DRUGS (5)
  1. PARAGARD 380A [Suspect]
     Indication: CONTRACEPTION
     Route: 015
     Dates: start: 20131014, end: 20131120
  2. PARAGARD 380A [Suspect]
     Route: 015
     Dates: start: 20131120, end: 20140101
  3. FLEXERIL [Concomitant]
     Indication: MYALGIA
  4. COLACE [Concomitant]
     Indication: CONSTIPATION
  5. CHANTIX [Concomitant]
     Indication: SMOKING CESSATION THERAPY

REACTIONS (3)
  - Device dislocation [Recovered/Resolved]
  - Vaginal haemorrhage [Recovered/Resolved]
  - Pain [Recovered/Resolved]
